FAERS Safety Report 4447477-3 (Version None)
Quarter: 2004Q3

REPORT INFORMATION
  Report Type: 
  Country: None (occurrence: None)
  Receive Date: 20040823
  Receipt Date: 20040506
  Transmission Date: 20050211
  Serious: No
  Sender: FDA-Public Use
  Company Number: PHEH2004US05036

PATIENT
  Age: 63 Year
  Sex: Female

DRUGS (2)
  1. ZELNORM [Suspect]
     Indication: GASTROOESOPHAGEAL REFLUX DISEASE
     Dosage: 6 MG, BID, ORAL
     Route: 048
     Dates: start: 20040101, end: 20040415
  2. PROTONIX [Concomitant]

REACTIONS (2)
  - HAIR TEXTURE ABNORMAL [None]
  - HYPOTRICHOSIS [None]
